FAERS Safety Report 10264414 (Version 1)
Quarter: 2014Q2

REPORT INFORMATION
  Report Type: Spontaneous
  Country: JP (occurrence: JP)
  Receive Date: 20140627
  Receipt Date: 20140627
  Transmission Date: 20141212
  Serious: Yes (Other)
  Sender: FDA-Public Use
  Company Number: JP-ELI_LILLY_AND_COMPANY-JP201406006658

PATIENT
  Age: 61 Year
  Sex: Male

DRUGS (10)
  1. CYMBALTA [Suspect]
     Indication: DEPRESSION
     Dosage: 60 MG, QD
     Route: 048
     Dates: start: 20131220
  2. LINAGLIPTIN [Concomitant]
     Dosage: UNK
     Route: 048
  3. FEBUXOSTAT [Concomitant]
     Dosage: UNK
     Route: 048
  4. BAYASPIRIN [Concomitant]
     Dosage: UNK
     Route: 048
  5. ESTAZOLAM [Concomitant]
     Indication: DEPRESSION
     Dosage: UNK
     Route: 048
  6. EVAMYL [Concomitant]
     Indication: DEPRESSION
     Dosage: UNK
     Route: 048
  7. FLUNITRAZEPAM [Concomitant]
     Indication: DEPRESSION
     Dosage: UNK
     Route: 048
  8. PHENOBAL                           /00023201/ [Concomitant]
     Indication: DEPRESSION
     Dosage: UNK
     Route: 048
  9. ROZEREM [Concomitant]
     Indication: DEPRESSION
     Dosage: UNK
     Route: 048
  10. URSODEOXYCHOL [Concomitant]
     Dosage: UNK
     Route: 048

REACTIONS (2)
  - Blood creatine phosphokinase increased [Unknown]
  - Asthenia [Recovered/Resolved]
